FAERS Safety Report 24569239 (Version 4)
Quarter: 2024Q4

REPORT INFORMATION
  Report Type: Report from Study
  Country: US (occurrence: US)
  Receive Date: 20241031
  Receipt Date: 20241216
  Transmission Date: 20250115
  Serious: No
  Sender: MERCK
  Company Number: US-009507513-2410USA012852

PATIENT
  Sex: Female
  Weight: 76.19 kg

DRUGS (37)
  1. SOTATERCEPT [Suspect]
     Active Substance: SOTATERCEPT
     Indication: Pulmonary arterial hypertension
     Dosage: 1.1 ML, Q3W; STRENGTH 60 MG
     Route: 058
     Dates: start: 20240930, end: 20240930
  2. SOTATERCEPT [Suspect]
     Active Substance: SOTATERCEPT
     Dosage: 1.1 ML, Q3W; STRENGTH 60 MG
     Route: 058
     Dates: start: 20241024, end: 20241024
  3. REMODULIN [Suspect]
     Active Substance: TREPROSTINIL
     Indication: Pulmonary arterial hypertension
     Dosage: UNK, DELIVERED VIA PUMP, CONTINUOUS
     Route: 058
     Dates: start: 20240403
  4. REMODULIN [Suspect]
     Active Substance: TREPROSTINIL
     Dosage: 0.041 MICROGRAM PER KILOGRAM, DELIVERED VIA PUMP (2ML PER CASSETTE; PUMP RATE OF 20MCL PER HOUR), CO
     Route: 058
     Dates: start: 2024
  5. REMODULIN [Suspect]
     Active Substance: TREPROSTINIL
     Dosage: 0.043 MICROGRAM PER KILOGRAM, DELIVERED VIA PUMP (2.2ML PER CASSETTE; PUMP RATE OF 21MCL PER HOUR),
     Route: 058
     Dates: start: 2024
  6. REMODULIN [Suspect]
     Active Substance: TREPROSTINIL
     Dosage: 0.045 MICROGRAM PER KILOGRAM, DELIVERED VIA PUMP (2.2ML PER CASSETTE; PUMP RATE OF 22MCL PER HOUR),
     Route: 058
     Dates: start: 2024
  7. TYLENOL EXTRA STRENGTH [Concomitant]
     Active Substance: ACETAMINOPHEN
  8. VOLTAREN ARTHRITIS PAIN [Concomitant]
     Active Substance: DICLOFENAC SODIUM
  9. PROZAC [Concomitant]
     Active Substance: FLUOXETINE HYDROCHLORIDE
  10. FIORICET [Concomitant]
     Active Substance: ACETAMINOPHEN\BUTALBITAL\CAFFEINE
  11. PRED FORTE [Concomitant]
     Active Substance: PREDNISOLONE ACETATE
  12. POTASSIUM CHLORIDE [Concomitant]
     Active Substance: POTASSIUM CHLORIDE
  13. ACETAMINOPHEN\HYDROCODONE [Concomitant]
     Active Substance: ACETAMINOPHEN\HYDROCODONE
  14. DIFLUPREDNATE [Concomitant]
     Active Substance: DIFLUPREDNATE
  15. REFRESH RELIEVA [Concomitant]
     Active Substance: CARBOXYMETHYLCELLULOSE SODIUM\GLYCERIN
  16. MEDICAL FOOD [Concomitant]
     Active Substance: MEDICAL FOOD
  17. LEVETIRACETAM [Concomitant]
     Active Substance: LEVETIRACETAM
  18. IBUPROFEN [Concomitant]
     Active Substance: IBUPROFEN
  19. FLUTICASONE PROPIONATE [Concomitant]
     Active Substance: FLUTICASONE PROPIONATE
  20. VITAMINS NOS [Concomitant]
     Active Substance: VITAMINS
  21. MUPIROCIN [Concomitant]
     Active Substance: MUPIROCIN
  22. LIDOCAINE [Concomitant]
     Active Substance: LIDOCAINE
  23. REFRESH PLUS [Concomitant]
     Active Substance: CARBOXYMETHYLCELLULOSE SODIUM
  24. NYSTATIN;TRIAMCINOLONE [Concomitant]
  25. ZINC [Concomitant]
     Active Substance: ZINC
  26. GABAPENTIN [Concomitant]
     Active Substance: GABAPENTIN
  27. OLOPATADINE HYDROCHLORIDE [Concomitant]
     Active Substance: OLOPATADINE HYDROCHLORIDE
  28. FUROSEMIDE [Concomitant]
     Active Substance: FUROSEMIDE
  29. ONDANSETRON [Concomitant]
     Active Substance: ONDANSETRON
  30. VITAMIN D3 [Concomitant]
     Active Substance: CHOLECALCIFEROL
  31. FEXOFENADINE HYDROCHLORIDE [Concomitant]
     Active Substance: FEXOFENADINE HYDROCHLORIDE
  32. DIPHENHYDRAMINE HYDROCHLORIDE [Concomitant]
     Active Substance: DIPHENHYDRAMINE HYDROCHLORIDE
  33. OXYCODONE AND ACETAMINOPHEN [Concomitant]
     Active Substance: ACETAMINOPHEN\OXYCODONE HYDROCHLORIDE
  34. PROCTO-MED HC [Concomitant]
     Active Substance: HYDROCORTISONE
  35. LOPERAMIDE [Concomitant]
     Active Substance: LOPERAMIDE
  36. VITAMIN B COMPLEX WITH C [Concomitant]
     Active Substance: ASCORBIC ACID\CALCIUM PANTOTHENATE\CYANOCOBALAMIN\NIACINAMIDE\PYRIDOXINE HYDROCHLORIDE\RIBOFLAVIN\TH
  37. TRIAMCINOLONE ACETONIDE [Concomitant]
     Active Substance: TRIAMCINOLONE ACETONIDE

REACTIONS (6)
  - Infusion site pruritus [Not Recovered/Not Resolved]
  - Pruritus [Unknown]
  - Back pain [Unknown]
  - Headache [Unknown]
  - Epistaxis [Unknown]
  - Inappropriate schedule of product administration [Unknown]

NARRATIVE: CASE EVENT DATE: 20240101
